FAERS Safety Report 24655313 (Version 1)
Quarter: 2024Q4

REPORT INFORMATION
  Report Type: Spontaneous
  Country: US (occurrence: US)
  Receive Date: 20241123
  Receipt Date: 20241123
  Transmission Date: 20250114
  Serious: Yes (Hospitalization, Other)
  Sender: ABBVIE
  Company Number: US-ABBVIE-6016419

PATIENT
  Age: 48 Year
  Sex: Female

DRUGS (1)
  1. HUMIRA [Suspect]
     Active Substance: ADALIMUMAB
     Indication: Product used for unknown indication
     Dosage: STRENGTH- 40MG/0.4ML
     Route: 058

REACTIONS (4)
  - Suicidal ideation [Unknown]
  - Device defective [Unknown]
  - Psoriasis [Unknown]
  - Device defective [Unknown]

NARRATIVE: CASE EVENT DATE: 20240918
